FAERS Safety Report 9069295 (Version 3)
Quarter: 2013Q1

REPORT INFORMATION
  Report Type: Report from Study
  Country: CA (occurrence: CA)
  Receive Date: 20130215
  Receipt Date: 20130308
  Transmission Date: 20140127
  Serious: Yes (Other)
  Sender: FDA-Public Use
  Company Number: CA-ROCHE-1161460

PATIENT
  Sex: Female
  Weight: 82 kg

DRUGS (13)
  1. ACTEMRA [Suspect]
     Indication: RHEUMATOID ARTHRITIS
     Route: 042
     Dates: start: 20120608
  2. ACTEMRA [Suspect]
     Route: 042
     Dates: start: 20120606
  3. NAPROSYN [Concomitant]
  4. SULFASALAZINE [Concomitant]
  5. METHOTREXATE [Concomitant]
     Route: 065
  6. FOLIC ACID [Concomitant]
  7. LOPRESSOR [Concomitant]
  8. EZETROL [Concomitant]
  9. CRESTOR [Concomitant]
  10. RIVASA [Concomitant]
  11. ESTALIS [Concomitant]
  12. EURO D [Concomitant]
  13. NEXIUM [Concomitant]

REACTIONS (3)
  - Cyst [Not Recovered/Not Resolved]
  - Wound secretion [Not Recovered/Not Resolved]
  - Wound dehiscence [Not Recovered/Not Resolved]
